FAERS Safety Report 5724560-3 (Version None)
Quarter: 2008Q2

REPORT INFORMATION
  Report Type: 
  Country: None (occurrence: None)
  Receive Date: 20080430
  Receipt Date: 20080430
  Transmission Date: 20081010
  Serious: No
  Sender: FDA-Public Use
  Company Number: None

PATIENT
  Age: 23 Year
  Sex: Male
  Weight: 52 kg

DRUGS (6)
  1. HORSE-ATG [Suspect]
     Dosage: 2160MG IVPB Q24
     Route: 042
     Dates: start: 20071218, end: 20071221
  2. CYCLOSPORINE [Concomitant]
  3. PREDNISONE TAB [Concomitant]
  4. AMLODIPINE [Concomitant]
  5. MAGNESIUM OXIDE [Concomitant]
  6. OMEPRAZOLE [Concomitant]

REACTIONS (3)
  - CHILLS [None]
  - HYPERPYREXIA [None]
  - HYPOTENSION [None]
